FAERS Safety Report 24371962 (Version 1)
Quarter: 2024Q3

REPORT INFORMATION
  Report Type: Spontaneous
  Country: CA (occurrence: CA)
  Receive Date: 20240927
  Receipt Date: 20240927
  Transmission Date: 20241016
  Serious: Yes (Hospitalization)
  Sender: SK LIFE SCIENCE
  Company Number: CA-SK LIFE SCIENCE, INC-SKPVG-2024-002265

PATIENT

DRUGS (2)
  1. XCOPRI [Suspect]
     Active Substance: CENOBAMATE
     Indication: Partial seizures
     Dosage: UNK
     Route: 065
     Dates: start: 20240514, end: 2024
  2. XCOPRI [Suspect]
     Active Substance: CENOBAMATE
     Indication: Epilepsy
     Dosage: 25 MILLIGRAM, QD
     Route: 048
     Dates: start: 2024, end: 2024

REACTIONS (5)
  - Psychogenic seizure [Recovering/Resolving]
  - Condition aggravated [Recovering/Resolving]
  - Nightmare [Unknown]
  - Delusion [Unknown]
  - Mood altered [Unknown]

NARRATIVE: CASE EVENT DATE: 20240501
